FAERS Safety Report 10421392 (Version 1)
Quarter: 2014Q3

REPORT INFORMATION
  Report Type: Spontaneous
  Country: US (occurrence: US)
  Receive Date: 20140901
  Receipt Date: 20140901
  Transmission Date: 20150326
  Serious: No
  Sender: FDA-Public Use
  Company Number: US-009507513-1408USA009674

PATIENT
  Age: 25 Year
  Sex: Female
  Weight: 59.86 kg

DRUGS (2)
  1. NUVARING [Suspect]
     Active Substance: ETHINYL ESTRADIOL\ETONOGESTREL
     Dosage: 1 DF LEFT IN FOR 4 WEEKS IN INSTEAD OF 3 WEEKS
     Route: 067
     Dates: start: 20140714, end: 20140811
  2. NUVARING [Suspect]
     Active Substance: ETHINYL ESTRADIOL\ETONOGESTREL
     Indication: CONTRACEPTION
     Dosage: 1 RING 3 WEEKS IN/ 1 WEEK OUT
     Route: 067
     Dates: start: 201404, end: 20140707

REACTIONS (2)
  - Menorrhagia [Unknown]
  - Incorrect drug administration duration [Unknown]

NARRATIVE: CASE EVENT DATE: 20140804
